FAERS Safety Report 4876850-4 (Version None)
Quarter: 2005Q4

REPORT INFORMATION
  Report Type: 
  Country: None (occurrence: None)
  Receive Date: 20051206
  Receipt Date: 20050829
  Transmission Date: 20060501
  Serious: No
  Sender: FDA-Public Use
  Company Number: USA0508106715

PATIENT
  Age: 52 Year
  Sex: Female

DRUGS (4)
  1. CYMBALTA [Suspect]
     Indication: DEPRESSION
     Dosage: 30 MG DAY
     Dates: start: 20050822
  2. LORCET-HD [Concomitant]
  3. ESTRACE [Concomitant]
  4. ALEVE [Concomitant]

REACTIONS (4)
  - ASTHENOPIA [None]
  - DYSGEUSIA [None]
  - EYE PAIN [None]
  - NAUSEA [None]
